FAERS Safety Report 23971693 (Version 2)
Quarter: 2024Q3

REPORT INFORMATION
  Report Type: Spontaneous
  Country: CO (occurrence: CO)
  Receive Date: 20240613
  Receipt Date: 20240716
  Transmission Date: 20241017
  Serious: Yes (Hospitalization, Disabling, Other)
  Sender: REGENERON
  Company Number: CO-SA-SAC20240607001185

PATIENT
  Age: 76 Year
  Sex: Female

DRUGS (2)
  1. PRALUENT [Suspect]
     Active Substance: ALIROCUMAB
     Indication: Type IIa hyperlipidaemia
     Dosage: 150 MG, QOW
     Route: 058
     Dates: start: 2024
  2. LOVASTATIN [Concomitant]
     Active Substance: LOVASTATIN

REACTIONS (5)
  - Myocardial infarction [Unknown]
  - Dysstasia [Unknown]
  - Bone pain [Unknown]
  - Asthenia [Unknown]
  - Mobility decreased [Recovering/Resolving]

NARRATIVE: CASE EVENT DATE: 20240401
